FAERS Safety Report 16234379 (Version 3)
Quarter: 2019Q3

REPORT INFORMATION
  Report Type: Report from Study
  Country: US (occurrence: US)
  Receive Date: 20190424
  Receipt Date: 20190829
  Transmission Date: 20191004
  Serious: Yes (Hospitalization, Other)
  Sender: FDA-Public Use
  Company Number: PHEH2019US017266

PATIENT
  Sex: Female

DRUGS (2)
  1. ENTRESTO [Suspect]
     Active Substance: SACUBITRIL\VALSARTAN
     Indication: CARDIAC FAILURE
     Dosage: UNK, BID
     Route: 048
  2. FENOFIBRATE. [Suspect]
     Active Substance: FENOFIBRATE
     Indication: PRODUCT USED FOR UNKNOWN INDICATION
     Route: 065

REACTIONS (11)
  - Fatigue [Unknown]
  - Fluid retention [Unknown]
  - Memory impairment [Unknown]
  - Confusional state [Unknown]
  - Weight fluctuation [Unknown]
  - Generalised oedema [Unknown]
  - Headache [Unknown]
  - Hypotension [Unknown]
  - Renal failure [Unknown]
  - Ejection fraction decreased [Unknown]
  - Drug ineffective [Unknown]
